FAERS Safety Report 9268204 (Version 1)
Quarter: 2013Q2

REPORT INFORMATION
  Report Type: Spontaneous
  Country: US (occurrence: US)
  Receive Date: 20130502
  Receipt Date: 20130502
  Transmission Date: 20140414
  Serious: No
  Sender: FDA-Public Use
  Company Number: US-ALEXION-A201201825

PATIENT
  Age: 69 Year
  Sex: Female

DRUGS (1)
  1. SOLIRIS 300MG [Suspect]
     Indication: PAROXYSMAL NOCTURNAL HAEMOGLOBINURIA
     Dosage: 900 MG, Q2W
     Route: 042
     Dates: start: 20071126

REACTIONS (4)
  - Wound [Recovered/Resolved with Sequelae]
  - Swelling [Unknown]
  - Wound complication [Not Recovered/Not Resolved]
  - Infection [Recovered/Resolved with Sequelae]
